FAERS Safety Report 13359771 (Version 1)
Quarter: 2017Q1

REPORT INFORMATION
  Report Type: Spontaneous
  Country: US (occurrence: US)
  Receive Date: 20170322
  Receipt Date: 20170322
  Transmission Date: 20170429
  Serious: Yes (Other)
  Sender: FDA-Public Use
  Company Number: US-PFIZER INC-2017116672

PATIENT
  Age: 67 Year
  Sex: Male

DRUGS (1)
  1. SUTENT [Suspect]
     Active Substance: SUNITINIB MALATE
     Dosage: 50 MG, CYCLIC [2 WEEKS ON/1 WEEK OFF]

REACTIONS (7)
  - Cataract [Unknown]
  - Blood iron decreased [Unknown]
  - Haemorrhage [Unknown]
  - Retinal detachment [Unknown]
  - Blood glucose decreased [Unknown]
  - Haemoglobin decreased [Unknown]
  - Constipation [Unknown]
